FAERS Safety Report 7446512-8 (Version None)
Quarter: 2011Q2

REPORT INFORMATION
  Report Type: 
  Country: None (occurrence: None)
  Receive Date: 20110429
  Receipt Date: 20101028
  Transmission Date: 20111010
  Serious: No
  Sender: FDA-Public Use
  Company Number: US-ASTRAZENECA-2010SE34370

PATIENT
  Age: 851 Month
  Sex: Female
  Weight: 74.8 kg

DRUGS (5)
  1. NEXIUM [Suspect]
     Indication: GASTROOESOPHAGEAL REFLUX DISEASE
     Route: 048
     Dates: start: 20100601
  2. SIMVASTATIN [Concomitant]
  3. PRILOSEC [Suspect]
     Route: 048
     Dates: end: 20101101
  4. LEVOTHYROXINE SODIUM [Concomitant]
  5. NEXIUM [Suspect]
     Route: 048
     Dates: end: 20101101

REACTIONS (5)
  - HEADACHE [None]
  - BACK PAIN [None]
  - MUSCULOSKELETAL DISCOMFORT [None]
  - MUSCLE SPASMS [None]
  - CHEST PAIN [None]
